FAERS Safety Report 9798902 (Version 2)
Quarter: 2014Q1

REPORT INFORMATION
  Report Type: Spontaneous
  Country: US (occurrence: US)
  Receive Date: 20140106
  Receipt Date: 20140106
  Transmission Date: 20141002
  Serious: No
  Sender: FDA-Public Use
  Company Number: US-GILEAD-2010-0034513

PATIENT
  Age: 79 Year
  Sex: Male

DRUGS (4)
  1. LETAIRIS [Suspect]
     Indication: PULMONARY HYPERTENSION
     Route: 048
     Dates: start: 20100301
  2. PLAVIX [Concomitant]
  3. SPIRIVA [Concomitant]
  4. ADVAIR [Concomitant]

REACTIONS (1)
  - Haemoptysis [Recovered/Resolved]
